FAERS Safety Report 20965605 (Version 1)
Quarter: 2022Q2

REPORT INFORMATION
  Report Type: Spontaneous
  Country: US (occurrence: US)
  Receive Date: 20220616
  Receipt Date: 20220616
  Transmission Date: 20220721
  Serious: Yes (Hospitalization, Other)
  Sender: FDA-Public Use
  Company Number: US-Global Blood Therapeutics Inc-US-GBT-22-03615

PATIENT
  Sex: Male

DRUGS (2)
  1. OXBRYTA [Suspect]
     Active Substance: VOXELOTOR
     Indication: Sickle cell disease
     Route: 048
     Dates: start: 20220520
  2. ANTITHROMBOTIC [Concomitant]
     Indication: Thrombosis
     Dosage: NOT PROVIDED

REACTIONS (7)
  - Haemoglobin decreased [Unknown]
  - Haematochezia [Unknown]
  - Blood urine present [Unknown]
  - Vomiting [Recovered/Resolved]
  - Faeces hard [Unknown]
  - Product dose omission issue [Unknown]
  - Off label use [Unknown]

NARRATIVE: CASE EVENT DATE: 20220101
